FAERS Safety Report 6917005-9 (Version None)
Quarter: 2010Q3

REPORT INFORMATION
  Report Type: 
  Country: None (occurrence: None)
  Receive Date: 20100810
  Receipt Date: 20100730
  Transmission Date: 20110219
  Serious: Yes (Hospitalization)
  Sender: FDA-Public Use
  Company Number: A0864132A

PATIENT
  Sex: Male
  Weight: 73.6 kg

DRUGS (8)
  1. AVANDIA [Suspect]
     Indication: DIABETES MELLITUS
     Dosage: 4MG PER DAY
     Route: 048
     Dates: start: 19990101, end: 20060301
  2. RAMIPRIL [Concomitant]
  3. VIAGRA [Concomitant]
  4. ZOCOR [Concomitant]
  5. BISOPROLOL [Concomitant]
  6. GLYBURIDE [Concomitant]
  7. GLUCOPHAGE [Concomitant]
  8. ASPIRIN [Concomitant]

REACTIONS (2)
  - CARDIAC FAILURE CONGESTIVE [None]
  - MYOCARDIAL INFARCTION [None]
